FAERS Safety Report 7579684-5 (Version None)
Quarter: 2011Q2

REPORT INFORMATION
  Report Type: 
  Country: None (occurrence: None)
  Receive Date: 20110629
  Receipt Date: 20110615
  Transmission Date: 20111010
  Serious: Yes (Hospitalization)
  Sender: FDA-Public Use
  Company Number: US-BAYER-201038066NA

PATIENT
  Age: 37 Year
  Sex: Female
  Weight: 63.492 kg

DRUGS (7)
  1. TEGETROL [Concomitant]
  2. YAZ [Suspect]
     Indication: ACNE
     Dosage: UNK
     Dates: start: 20070101, end: 20080101
  3. YASMIN [Suspect]
     Indication: ACNE
     Dosage: UNK
     Dates: start: 20070101, end: 20080101
  4. DROSPIRENONE AND ETHINYL ESTRADIOL [Suspect]
     Indication: ACNE
  5. ZOLOFT [Concomitant]
  6. ASPIRIN [Concomitant]
  7. NORVASC [Concomitant]

REACTIONS (5)
  - INJURY [None]
  - INTRACRANIAL ANEURYSM [None]
  - PAIN [None]
  - SUBARACHNOID HAEMORRHAGE [None]
  - CEREBROVASCULAR ACCIDENT [None]
